FAERS Safety Report 11051553 (Version 1)
Quarter: 2015Q2

REPORT INFORMATION
  Report Type: Spontaneous
  Country: US (occurrence: US)
  Receive Date: 20150421
  Receipt Date: 20150421
  Transmission Date: 20150821
  Serious: Yes (Other)
  Sender: FDA-Public Use
  Company Number: US-PFIZER INC-2015136441

PATIENT
  Age: 57 Year
  Sex: Female
  Weight: 94 kg

DRUGS (1)
  1. CELEBREX [Suspect]
     Active Substance: CELECOXIB
     Indication: BACK PAIN
     Dosage: 200 MG, SINGLE
     Route: 048
     Dates: start: 201310, end: 201310

REACTIONS (3)
  - Urticaria [Unknown]
  - Anaphylactic reaction [Unknown]
  - Swollen tongue [Unknown]

NARRATIVE: CASE EVENT DATE: 201310
